FAERS Safety Report 9046229 (Version 1)
Quarter: 2013Q1

REPORT INFORMATION
  Report Type: Spontaneous
  Country: VE (occurrence: VE)
  Receive Date: 20130201
  Receipt Date: 20130201
  Transmission Date: 20140127
  Serious: Yes (Death, Other)
  Sender: FDA-Public Use
  Company Number: PHHY2013VE008817

PATIENT
  Age: 89 None
  Sex: Female

DRUGS (2)
  1. DIOVAN [Suspect]
     Indication: HYPERTENSION
     Dosage: 160 MG, DAILY
     Route: 048
  2. CORASPIRINA [Concomitant]
     Indication: HYPERTENSION
     Dosage: 81 MG, DAILY
     Route: 048

REACTIONS (6)
  - Respiratory arrest [Fatal]
  - Senile dementia [Not Recovered/Not Resolved]
  - Eating disorder [Unknown]
  - Abasia [Unknown]
  - Speech disorder [Unknown]
  - Memory impairment [Unknown]
